FAERS Safety Report 21152418 (Version 2)
Quarter: 2024Q4

REPORT INFORMATION
  Report Type: Spontaneous
  Country: US (occurrence: US)
  Receive Date: 20220730
  Receipt Date: 20241022
  Transmission Date: 20250115
  Serious: No
  Sender: SANOFI AVENTIS
  Company Number: US-SA-SAC20220721002480

PATIENT
  Age: 68 Year
  Sex: Female

DRUGS (1)
  1. KEVZARA [Suspect]
     Active Substance: SARILUMAB
     Indication: Rheumatoid arthritis
     Dosage: 200 MG, QOW
     Route: 058
     Dates: start: 201907

REACTIONS (6)
  - Nausea [Unknown]
  - Hypertension [Unknown]
  - Anaemia vitamin B12 deficiency [Unknown]
  - Blood magnesium decreased [Unknown]
  - Blood sodium decreased [Unknown]
  - Blood potassium decreased [Unknown]
